FAERS Safety Report 6132412-2 (Version None)
Quarter: 2009Q1

REPORT INFORMATION
  Report Type: 
  Country: None (occurrence: None)
  Receive Date: 20090324
  Receipt Date: 20090313
  Transmission Date: 20090719
  Serious: Yes (Death)
  Sender: FDA-Public Use
  Company Number: WAES 0902USA01019

PATIENT
  Age: 84 Year
  Sex: Male

DRUGS (12)
  1. PEPCID RPD [Suspect]
     Dosage: 40 MG/DAILY PO
     Route: 048
     Dates: start: 20071112
  2. CELECOXIB [Suspect]
     Indication: OSTEOARTHRITIS
     Dosage: 100 MG/BID PO, 100 MG/BID
     Route: 048
     Dates: start: 20080308, end: 20080404
  3. CELECOXIB [Suspect]
     Indication: OSTEOARTHRITIS
     Dosage: 100 MG/BID PO, 100 MG/BID
     Route: 048
     Dates: start: 20080418, end: 20080429
  4. CELECOXIB [Suspect]
     Indication: OSTEOARTHRITIS
     Dosage: 100 MG/BID PO, 100 MG/BID
     Route: 048
     Dates: start: 20080512
  5. RISEDRONATE SODIUM [Suspect]
     Indication: OSTEOPOROSIS
     Dosage: 2.5 MG/DAILY PO
     Route: 048
     Dates: start: 20080417
  6. DIAZEPAM [Concomitant]
  7. GASLON [Concomitant]
  8. LAC-B [Concomitant]
  9. MUCOSTA [Concomitant]
  10. THEO-DUR [Concomitant]
  11. URSO 250 [Concomitant]
  12. ZYLORIC [Concomitant]

REACTIONS (7)
  - DISSEMINATED INTRAVASCULAR COAGULATION [None]
  - GASTROINTESTINAL HAEMORRHAGE [None]
  - HAEMATEMESIS [None]
  - HAEMATOCRIT DECREASED [None]
  - HAEMOGLOBIN DECREASED [None]
  - RED BLOOD CELL COUNT DECREASED [None]
  - STRESS ULCER [None]
